FAERS Safety Report 18376443 (Version 1)
Quarter: 2020Q4

REPORT INFORMATION
  Report Type: Spontaneous
  Country: US (occurrence: US)
  Receive Date: 20201012
  Receipt Date: 20201012
  Transmission Date: 20210114
  Serious: Yes (Hospitalization)
  Sender: FDA-Public Use
  Company Number: None

PATIENT
  Age: 56 Year
  Sex: Female
  Weight: 87.75 kg

DRUGS (4)
  1. MORPHINE [Suspect]
     Active Substance: MORPHINE
     Route: 042
     Dates: start: 20201008, end: 20201008
  2. CYMBAL YA [Concomitant]
  3. TORADOL [Suspect]
     Active Substance: KETOROLAC TROMETHAMINE
     Route: 042
     Dates: start: 20201008, end: 20201008
  4. ESTRADIOL NORETH [Concomitant]

REACTIONS (8)
  - Product formulation issue [None]
  - Drug hypersensitivity [None]
  - Diarrhoea [None]
  - Dyspepsia [None]
  - Cerebrovascular accident [None]
  - Pain [None]
  - Chest pain [None]
  - Somnolence [None]

NARRATIVE: CASE EVENT DATE: 20201008
